FAERS Safety Report 4421838-0 (Version None)
Quarter: 2004Q3

REPORT INFORMATION
  Report Type: 
  Country: None (occurrence: None)
  Receive Date: 20040806
  Receipt Date: 20040727
  Transmission Date: 20050211
  Serious: Yes (Life-Threatening, Hospitalization, Other)
  Sender: FDA-Public Use
  Company Number: 2004017234

PATIENT
  Age: 26 Year
  Sex: Male
  Weight: 108.8633 kg

DRUGS (15)
  1. GEODON [Suspect]
     Indication: SCHIZOPHRENIA, PARANOID TYPE
     Dosage: SEE IMAGE
     Route: 048
     Dates: start: 20040301, end: 20040301
  2. GEODON [Suspect]
     Indication: SCHIZOPHRENIA, PARANOID TYPE
     Dosage: SEE IMAGE
     Route: 048
     Dates: start: 20040221, end: 20040309
  3. CLONAZEPAM [Concomitant]
  4. LORAZEPAM [Concomitant]
  5. DIPHENYDRAMINE HYDROCHLORIDE [Concomitant]
  6. PIOGLITAZONE HCL [Concomitant]
  7. DILTIAZEM HYDROCHLORIDE [Concomitant]
  8. LEVOTHYROXINE SODIUM [Concomitant]
  9. METFORMIN HCL [Concomitant]
  10. SERTRALINE HCL [Concomitant]
  11. GLYBURIDE [Concomitant]
  12. AMLODIPINE (AMLODIINE) [Concomitant]
  13. QUINIDINE (QUINIDINE) [Concomitant]
  14. ACETAMINOPHEN [Concomitant]
  15. DOCUSATE SODIUM (DOCUSATE SODIUM) [Concomitant]

REACTIONS (11)
  - ACUTE PSYCHOSIS [None]
  - ANXIETY [None]
  - CATATONIA [None]
  - CRANIAL NERVE DISORDER [None]
  - DISEASE PROGRESSION [None]
  - HYPERTENSION [None]
  - INCOHERENT [None]
  - INTENTIONAL SELF-INJURY [None]
  - NEUROLEPTIC MALIGNANT SYNDROME [None]
  - OVERDOSE [None]
  - SCHIZOPHRENIA, PARANOID TYPE [None]
